FAERS Safety Report 7593583-4 (Version None)
Quarter: 2011Q3

REPORT INFORMATION
  Report Type: 
  Country: None (occurrence: None)
  Receive Date: 20110706
  Receipt Date: 20110627
  Transmission Date: 20111222
  Serious: Yes (Other)
  Sender: FDA-Public Use
  Company Number: ES-ASTRAZENECA-2011SE38672

PATIENT
  Age: 25 Year
  Sex: Female

DRUGS (1)
  1. MEROPENEM [Suspect]
     Route: 042

REACTIONS (6)
  - ANAPHYLACTIC REACTION [None]
  - DYSPNOEA [None]
  - HYPOTENSION [None]
  - PRURITUS GENERALISED [None]
  - ANGIOEDEMA [None]
  - URTICARIA [None]
